FAERS Safety Report 4870608-8 (Version None)
Quarter: 2005Q4

REPORT INFORMATION
  Report Type: 
  Country: None (occurrence: None)
  Receive Date: 20051228
  Receipt Date: 20051220
  Transmission Date: 20060501
  Serious: Yes (Death)
  Sender: FDA-Public Use
  Company Number: 2005PV006076

PATIENT
  Age: 66 Year
  Sex: Female

DRUGS (8)
  1. BYETTA [Suspect]
     Indication: DIABETES MELLITUS NON-INSULIN-DEPENDENT
     Dosage: 5 MCG; QD; SC
     Dates: start: 20051123, end: 20050101
  2. METFORMIN [Concomitant]
  3. CARDIZEM LA [Concomitant]
  4. AMBIEN [Concomitant]
  5. EVISTA [Concomitant]
  6. ZYPREXA [Concomitant]
  7. WELLBUTRIN [Concomitant]
  8. METFORMIN [Concomitant]

REACTIONS (1)
  - DEATH [None]
